FAERS Safety Report 14565460 (Version 1)
Quarter: 2018Q1

REPORT INFORMATION
  Report Type: Spontaneous
  Country: US (occurrence: US)
  Receive Date: 20180223
  Receipt Date: 20180223
  Transmission Date: 20180509
  Serious: Yes (Other)
  Sender: FDA-Public Use
  Company Number: US-ASTRAZENECA-2018SE22199

PATIENT
  Age: 75 Year
  Sex: Female
  Weight: 76.7 kg

DRUGS (1)
  1. BYETTA [Suspect]
     Active Substance: EXENATIDE
     Indication: RENAL DISORDER
     Route: 058
     Dates: start: 2008

REACTIONS (3)
  - Off label use [Unknown]
  - Product use in unapproved indication [Unknown]
  - Skin cancer [Unknown]

NARRATIVE: CASE EVENT DATE: 2008
